FAERS Safety Report 9217727 (Version 1)
Quarter: 2013Q2

REPORT INFORMATION
  Report Type: Spontaneous
  Country: BR (occurrence: BR)
  Receive Date: 20130408
  Receipt Date: 20130408
  Transmission Date: 20140414
  Serious: Yes (Other)
  Sender: FDA-Public Use
  Company Number: BR-ROCHE-1210092

PATIENT
  Sex: Female
  Weight: 71 kg

DRUGS (3)
  1. RIVOTRIL [Suspect]
     Indication: ANXIETY
     Route: 060
  2. SERTRALINE [Concomitant]
     Route: 065
  3. CYCLOBENZAPRINE [Concomitant]
     Route: 065

REACTIONS (2)
  - Cardiac disorder [Not Recovered/Not Resolved]
  - Drug administration error [Unknown]
